FAERS Safety Report 14942978 (Version 1)
Quarter: 2018Q2

REPORT INFORMATION
  Report Type: Spontaneous
  Country: FR (occurrence: FR)
  Receive Date: 20180528
  Receipt Date: 20180528
  Transmission Date: 20180711
  Serious: Yes (Other)
  Sender: FDA-Public Use
  Company Number: FR-ROCHE-2129358

PATIENT
  Age: 57 Year
  Sex: Female

DRUGS (1)
  1. GANCICLOVIR. [Suspect]
     Active Substance: GANCICLOVIR
     Indication: CYTOMEGALOVIRUS INFECTION
     Dosage: UNK
     Route: 065

REACTIONS (5)
  - Peritonitis [Unknown]
  - Cytomegalovirus infection [Unknown]
  - Septic shock [Unknown]
  - Pancreatitis [Unknown]
  - Gastrointestinal necrosis [Unknown]
